FAERS Safety Report 7039810-3 (Version None)
Quarter: 2010Q4

REPORT INFORMATION
  Report Type: 
  Country: None (occurrence: None)
  Receive Date: 20101012
  Receipt Date: 20101006
  Transmission Date: 20110411
  Serious: Yes (Other)
  Sender: FDA-Public Use
  Company Number: CA-MERCK-1010USA00781

PATIENT
  Age: 15 Year
  Sex: Female

DRUGS (3)
  1. SINGULAIR [Suspect]
     Route: 048
  2. MELATONIN [Concomitant]
     Route: 048
  3. VENTOLIN HFA [Concomitant]
     Route: 055

REACTIONS (3)
  - ANXIETY [None]
  - DEPRESSIVE SYMPTOM [None]
  - MOOD SWINGS [None]
